FAERS Safety Report 4989173-X (Version None)
Quarter: 2006Q2

REPORT INFORMATION
  Report Type: 
  Country: None (occurrence: None)
  Receive Date: 20060425
  Receipt Date: 20060410
  Transmission Date: 20061013
  Serious: Yes (Hospitalization, Other)
  Sender: FDA-Public Use
  Company Number: 2006050367

PATIENT
  Sex: Male
  Weight: 88.4514 kg

DRUGS (5)
  1. VIAGRA [Suspect]
     Indication: ERECTILE DYSFUNCTION
     Dosage: (50 MG)
  2. XALATAN [Suspect]
     Indication: GLAUCOMA
  3. COUMADIN [Suspect]
     Indication: HEART RATE ABNORMAL
     Dates: end: 20050401
  4. NORVASC [Concomitant]
  5. ASPIRIN [Concomitant]

REACTIONS (5)
  - DRUG INEFFECTIVE [None]
  - GALLBLADDER OPERATION [None]
  - GLAUCOMA [None]
  - PANCREATITIS RELAPSING [None]
  - SUBDURAL HAEMORRHAGE [None]
